FAERS Safety Report 7481180-0 (Version None)
Quarter: 2011Q2

REPORT INFORMATION
  Report Type: 
  Country: None (occurrence: None)
  Receive Date: 20110516
  Receipt Date: 20110510
  Transmission Date: 20111010
  Serious: Yes (Other)
  Sender: FDA-Public Use
  Company Number: US-SANOFI-AVENTIS-2011SA028339

PATIENT
  Age: 87 Year
  Sex: Male

DRUGS (7)
  1. FUROSEMIDE [Concomitant]
  2. FINASTERIDE [Concomitant]
  3. MULTAQ [Suspect]
     Indication: ATRIAL FIBRILLATION
     Route: 065
     Dates: start: 20100101, end: 20100101
  4. WARFARIN SODIUM [Concomitant]
  5. METOPROLOL SUCCINATE [Concomitant]
  6. ALLOPURINOL [Concomitant]
  7. LISINOPRIL [Concomitant]

REACTIONS (3)
  - RENAL FAILURE ACUTE [None]
  - ATRIAL FIBRILLATION [None]
  - BRADYCARDIA [None]
